FAERS Safety Report 9403343 (Version 2)
Quarter: 2013Q3

REPORT INFORMATION
  Report Type: Spontaneous
  Country: US (occurrence: US)
  Receive Date: 20130716
  Receipt Date: 20130822
  Transmission Date: 20140515
  Serious: Yes (Other)
  Sender: FDA-Public Use
  Company Number: US-US-EMD SERONO, INC.-7142855

PATIENT
  Sex: Male

DRUGS (11)
  1. REBIF [Suspect]
     Indication: MULTIPLE SCLEROSIS
     Route: 058
     Dates: start: 20120203
  2. REBIF [Suspect]
     Route: 058
  3. LASIX [Concomitant]
     Indication: OEDEMA PERIPHERAL
  4. INSULIN [Concomitant]
     Indication: DIABETES MELLITUS
  5. TYLENOL                            /00020001/ [Concomitant]
     Indication: PRODUCT USED FOR UNKNOWN INDICATION
  6. DEMEROL [Concomitant]
     Indication: PRODUCT USED FOR UNKNOWN INDICATION
  7. PROCARDIA [Concomitant]
     Indication: PRODUCT USED FOR UNKNOWN INDICATION
  8. DILANTIN                           /00017401/ [Concomitant]
     Indication: PRODUCT USED FOR UNKNOWN INDICATION
  9. GLUCOPHAGE                         /00082701/ [Concomitant]
     Indication: DIABETES MELLITUS
  10. ASPIRIN                            /00002701/ [Concomitant]
     Indication: PRODUCT USED FOR UNKNOWN INDICATION
  11. IBUPROFEN [Concomitant]
     Indication: PRODUCT USED FOR UNKNOWN INDICATION

REACTIONS (5)
  - Liver injury [Unknown]
  - Multiple sclerosis [Not Recovered/Not Resolved]
  - Body temperature increased [Unknown]
  - Injection site erythema [Recovering/Resolving]
  - Injection site rash [Recovered/Resolved]
